FAERS Safety Report 21947897 (Version 1)
Quarter: 2023Q1

REPORT INFORMATION
  Report Type: Spontaneous
  Country: JP (occurrence: JP)
  Receive Date: 20230203
  Receipt Date: 20230203
  Transmission Date: 20230418
  Serious: Yes (Other)
  Sender: FDA-Public Use
  Company Number: JP-MTPC-MTPC2023-0002671

PATIENT

DRUGS (1)
  1. EDARAVONE [Suspect]
     Active Substance: EDARAVONE
     Route: 041

REACTIONS (2)
  - Hallucination [Unknown]
  - Delusion [Unknown]
